FAERS Safety Report 10211741 (Version 1)
Quarter: 2014Q2

REPORT INFORMATION
  Report Type: Spontaneous
  Country: DE (occurrence: None)
  Receive Date: 20140528
  Receipt Date: 20140528
  Transmission Date: 20141212
  Serious: Yes (Hospitalization)
  Sender: FDA-Public Use
  Company Number: AUR-APL-2014-05501

PATIENT
  Age: 76 Year
  Sex: 0
  Weight: 96 kg

DRUGS (5)
  1. CLOPIDOGREL (CLOPIDOGREL) [Suspect]
     Indication: STRESS CARDIOMYOPATHY
  2. ASS (ACETYLSALICYLIC ACID) [Concomitant]
  3. HEPARIN (HEPARIN) [Concomitant]
  4. DESMOPRESSIN (DESMOPRESSIN) [Concomitant]
  5. CLEXANE (ENOXAPARIN SODIUM) [Concomitant]

REACTIONS (1)
  - Platelet function test abnormal [None]
